FAERS Safety Report 8564365-1 (Version None)
Quarter: 2012Q3

REPORT INFORMATION
  Report Type: 
  Country: None (occurrence: None)
  Receive Date: 20120803
  Receipt Date: 20120726
  Transmission Date: 20120928
  Serious: Yes (Other)
  Sender: FDA-Public Use
  Company Number: JP-ASTELLAS-2012JP005826

PATIENT
  Sex: Female
  Weight: 2.008 kg

DRUGS (7)
  1. PREDNISOLONE [Concomitant]
     Indication: EXPOSURE DURING BREAST FEEDING
     Dosage: 10 MG, UNKNOWN/D
     Route: 064
     Dates: end: 20120210
  2. TACROLIMUS [Suspect]
     Dosage: 1 MG, UID/QD
     Route: 063
     Dates: start: 20120213, end: 20120228
  3. TACROLIMUS [Suspect]
     Dosage: 2 MG, UID/QD
     Route: 063
     Dates: start: 20120229
  4. PREDNISOLONE [Concomitant]
     Indication: FOETAL EXPOSURE DURING PREGNANCY
     Dosage: 10 MG, UNKNOWN/D
     Route: 063
     Dates: start: 20120213
  5. TACROLIMUS [Suspect]
     Indication: FOETAL EXPOSURE DURING PREGNANCY
     Dosage: 2 MG, UID/QD
     Route: 064
     Dates: start: 20110727, end: 20120126
  6. TACROLIMUS [Suspect]
     Dosage: 1 MG, UID/QD
     Route: 064
     Dates: start: 20120127, end: 20120210
  7. TACROLIMUS [Suspect]
     Indication: EXPOSURE DURING BREAST FEEDING
     Dosage: 3 MG, UNKNOWN/D
     Route: 064
     Dates: end: 20110726

REACTIONS (4)
  - UMBILICAL CORD AROUND NECK [None]
  - LOW BIRTH WEIGHT BABY [None]
  - APGAR SCORE LOW [None]
  - EXPOSURE DURING BREAST FEEDING [None]
